FAERS Safety Report 23340014 (Version 3)
Quarter: 2024Q2

REPORT INFORMATION
  Report Type: Report from Study
  Country: NL (occurrence: NL)
  Receive Date: 20231227
  Receipt Date: 20240522
  Transmission Date: 20240716
  Serious: Yes (Hospitalization, Other)
  Sender: FDA-Public Use
  Company Number: NL-ABBVIE-5555588

PATIENT
  Sex: Male

DRUGS (10)
  1. CARBIDOPA\LEVODOPA [Suspect]
     Active Substance: CARBIDOPA\LEVODOPA
     Indication: Parkinson^s disease
     Dosage: MD 7.5 ML; CD 3.3 ML/H; ED 1.0 ML?REMAINS AT 16 HOURS
     Route: 050
     Dates: start: 20230516, end: 20231102
  2. CARBIDOPA\LEVODOPA [Suspect]
     Active Substance: CARBIDOPA\LEVODOPA
     Route: 050
     Dates: start: 20210705
  3. CARBIDOPA\LEVODOPA [Suspect]
     Active Substance: CARBIDOPA\LEVODOPA
     Dosage: MD 7.5 ML; CD 2.6 ML/H; ED 1.0 ML?REMAINS AT 16 HOURS
     Route: 050
     Dates: start: 20240116, end: 20240503
  4. CARBIDOPA\LEVODOPA [Suspect]
     Active Substance: CARBIDOPA\LEVODOPA
     Dosage: MD 7.5 ML; CD 3.2 ML/H; ED 1.0 ML?REMAINS AT 16 HOURS
     Route: 050
     Dates: start: 20231102, end: 20240104
  5. CARBIDOPA\LEVODOPA [Suspect]
     Active Substance: CARBIDOPA\LEVODOPA
     Dosage: MD 7.5 ML; CD 2.6 ML/H; ED 1.0 ML?REMAINS AT 16 HOURS
     Route: 050
     Dates: start: 20240503
  6. CARBIDOPA\LEVODOPA [Suspect]
     Active Substance: CARBIDOPA\LEVODOPA
     Dosage: MD 7.5 ML; CD 2.8 ML/H; ED 1.0 ML?REMAINS AT 16 HOURS
     Route: 050
     Dates: start: 20240104, end: 20240116
  7. RIVASTIGMINE [Concomitant]
     Active Substance: RIVASTIGMINE
     Indication: Hallucination
  8. MOVICOLON [Concomitant]
     Active Substance: POLYETHYLENE GLYCOL 3350\POTASSIUM CHLORIDE\SODIUM BICARBONATE\SODIUM CHLORIDE
     Indication: Bowel movement irregularity
  9. CARBIDOPA\LEVODOPA [Concomitant]
     Active Substance: CARBIDOPA\LEVODOPA
     Indication: Parkinson^s disease
     Dosage: TIME INTERVAL: 0.16666667 DAYS: FORM STRENGTH: 125 MILLIGRAM
     Route: 048
     Dates: start: 20100302
  10. ENTACAPONE [Concomitant]
     Active Substance: ENTACAPONE
     Indication: Parkinson^s disease
     Dosage: STRENGTH: 200 MILLIGRAM
     Route: 048
     Dates: start: 20200302

REACTIONS (24)
  - Cardiac disorder [Recovered/Resolved]
  - Tremor [Not Recovered/Not Resolved]
  - Somnolence [Not Recovered/Not Resolved]
  - Memory impairment [Not Recovered/Not Resolved]
  - Pneumonia [Not Recovered/Not Resolved]
  - Malaise [Recovering/Resolving]
  - General physical health deterioration [Unknown]
  - Illness [Not Recovered/Not Resolved]
  - Hypersomnia [Not Recovered/Not Resolved]
  - Disturbance in attention [Not Recovered/Not Resolved]
  - Cardiac failure [Recovered/Resolved]
  - Cognitive disorder [Not Recovered/Not Resolved]
  - Muscular weakness [Not Recovered/Not Resolved]
  - Pneumonia [Recovered/Resolved]
  - Restlessness [Not Recovered/Not Resolved]
  - On and off phenomenon [Recovered/Resolved]
  - On and off phenomenon [Not Recovered/Not Resolved]
  - Hyperkinesia [Not Recovered/Not Resolved]
  - Intentional medical device removal by patient [Not Recovered/Not Resolved]
  - Weight decreased [Recovered/Resolved]
  - Hypophagia [Not Recovered/Not Resolved]
  - Aggression [Not Recovered/Not Resolved]
  - Dyskinesia [Unknown]
  - Gait inability [Unknown]

NARRATIVE: CASE EVENT DATE: 20240501
